FAERS Safety Report 24651015 (Version 2)
Quarter: 2024Q4

REPORT INFORMATION
  Report Type: Spontaneous
  Country: IT (occurrence: IT)
  Receive Date: 20241122
  Receipt Date: 20241129
  Transmission Date: 20250115
  Serious: Yes (Life-Threatening, Other)
  Sender: AUROBINDO
  Company Number: IT-MINISAL02-1010184

PATIENT
  Age: 84 Year
  Sex: Female
  Weight: 60 kg

DRUGS (16)
  1. AZITHROMYCIN ANHYDROUS [Suspect]
     Active Substance: AZITHROMYCIN ANHYDROUS
     Indication: Campylobacter bacteraemia
     Dosage: 500 MILLIGRAM (FIRST ADMINISTRATION)
     Route: 048
     Dates: start: 20241104, end: 20241104
  2. DALBAVANCIN [Suspect]
     Active Substance: DALBAVANCIN
     Indication: Bacteraemia
     Dosage: 1500 MILLIGRAM
     Route: 042
     Dates: start: 20241104, end: 20241104
  3. CEFTRIAXONE [Concomitant]
     Active Substance: CEFTRIAXONE
     Indication: Product used for unknown indication
     Dosage: 2 GRAM (CEFTRIAXONE 2 G 1 FL IV AT 4 PM FOR ANOTHER 6 DAYS THEN STOP)
     Route: 042
  4. LANSOPRAZOLE [Concomitant]
     Active Substance: LANSOPRAZOLE
     Indication: Product used for unknown indication
     Dosage: 30 MILLIGRAM, 3 TIMES A DAY
     Route: 048
  5. LEVOTHYROXINE [Concomitant]
     Active Substance: LEVOTHYROXINE
     Indication: Product used for unknown indication
     Dosage: UNK (LEVOTHYROXINE 75 MCG 1 TABLET 7AM FROM MONDAY TO FRIDAY)
     Route: 048
  6. CANRENOATE POTASSIUM [Concomitant]
     Active Substance: CANRENOATE POTASSIUM
     Indication: Product used for unknown indication
     Dosage: UNK (POTASSIUM CANRENOATE 100 MG 1/2 TABLET AT 12 NOON)
     Route: 048
  7. FLECAINIDE [Concomitant]
     Active Substance: FLECAINIDE
     Indication: Product used for unknown indication
     Dosage: 100 MILLIGRAM (FLECAINIDE 100 MG 1/2 CP ORE 8)
     Route: 048
  8. METOPROLOL [Concomitant]
     Active Substance: METOPROLOL
     Indication: Product used for unknown indication
     Dosage: 100 MILLIGRAM, 3 TIMES A DAY (METOPROLOL 100 MG 1 TABLET 8 HOURS)
     Route: 048
  9. TRAZODONE [Concomitant]
     Active Substance: TRAZODONE HYDROCHLORIDE
     Indication: Product used for unknown indication
     Dosage: 150 MILLIGRAM (TRAZODONE 150 MG 1 TABLET AT 9PM)
     Route: 048
  10. ALPRAZOLAM [Concomitant]
     Active Substance: ALPRAZOLAM
     Indication: Product used for unknown indication
     Dosage: UNK (ALPRAZOLAM 0.25 MG 1 TABLET 8-16 HOURS ALPRAZOLAM 0.25 MG 2 TABLETS 10PM)
     Route: 048
  11. TALOFEN [Concomitant]
     Active Substance: PROMAZINE HYDROCHLORIDE
     Indication: Product used for unknown indication
     Dosage: 7 DROP (TALOFEN 40 MG/ML 7 TIMES A DAY AT 8PM)
     Route: 048
  12. METOCLOPRAMIDE [Concomitant]
     Active Substance: METOCLOPRAMIDE
     Indication: Product used for unknown indication
     Dosage: 10 MILLIGRAM (METOCLOPRAMIDE 10 MG 1 FL IV. 12-6PM)
     Route: 042
  13. ENOXAPARIN [Concomitant]
     Active Substance: ENOXAPARIN
     Indication: Product used for unknown indication
     Dosage: 4000 INTERNATIONAL UNIT (ENOXAPARIN 4,000 IU 1 FL S.C. 6PM)
     Route: 042
  14. ACETAMINOPHEN [Concomitant]
     Active Substance: ACETAMINOPHEN
     Indication: Product used for unknown indication
     Dosage: 1 GRAM (PARACETAMOL 1 G 1 FL I.V. AS NEEDED)
     Route: 042
  15. TRAMADOL [Concomitant]
     Active Substance: TRAMADOL
     Indication: Product used for unknown indication
     Dosage: 50 MILLIGRAM (TRAMADOL 50 MG 1 FL I.V. AS NEEDED)
     Route: 042
  16. MORPHINE HYDROCHLORIDE [Concomitant]
     Active Substance: MORPHINE HYDROCHLORIDE
     Indication: Product used for unknown indication
     Dosage: 3 MILLIGRAM (MORPHINE 3 MG I.V. AS NEEDED)
     Route: 042

REACTIONS (2)
  - Acute respiratory failure [Recovered/Resolved]
  - Erythema [Recovered/Resolved]

NARRATIVE: CASE EVENT DATE: 20241104
